FAERS Safety Report 15691511 (Version 1)
Quarter: 2018Q4

REPORT INFORMATION
  Report Type: Spontaneous
  Country: FR (occurrence: FR)
  Receive Date: 20181205
  Receipt Date: 20181205
  Transmission Date: 20190205
  Serious: Yes (Other)
  Sender: FDA-Public Use
  Company Number: FR-MYLANLABS-2018M1088521

PATIENT
  Age: 66 Year
  Sex: Male

DRUGS (1)
  1. PACLITAXEL. [Suspect]
     Active Substance: PACLITAXEL
     Indication: LUNG SQUAMOUS CELL CARCINOMA METASTATIC
     Dosage: ONE HOUR INFUSION
     Route: 050
     Dates: start: 2016

REACTIONS (3)
  - Staphylococcal infection [Unknown]
  - Superinfection bacterial [Unknown]
  - Periarticular thenar erythema with onycholysis [Unknown]
